FAERS Safety Report 10049322 (Version 2)
Quarter: 2014Q2

REPORT INFORMATION
  Report Type: Report from Study
  Country: DE (occurrence: DE)
  Receive Date: 20140401
  Receipt Date: 20140623
  Transmission Date: 20141212
  Serious: Yes (Other)
  Sender: FDA-Public Use
  Company Number: DE-ABBVIE-14P-062-1217896-00

PATIENT
  Age: 62 Year
  Sex: Male

DRUGS (1)
  1. TRENANTONE [Suspect]
     Indication: PROSTATE CANCER
     Route: 058
     Dates: start: 20121220

REACTIONS (3)
  - Gastrointestinal haemorrhage [Unknown]
  - Urge incontinence [Unknown]
  - Haemoglobin decreased [Unknown]
